FAERS Safety Report 4690344-0 (Version None)
Quarter: 2005Q2

REPORT INFORMATION
  Report Type: 
  Country: None (occurrence: None)
  Receive Date: 20050615
  Receipt Date: 20050603
  Transmission Date: 20051028
  Serious: Yes (Other)
  Sender: FDA-Public Use
  Company Number: JP-ROCHE-406900

PATIENT
  Age: 83 Year
  Sex: Female

DRUGS (1)
  1. ROCEPHIN [Suspect]
     Indication: CELLULITIS
     Route: 042
     Dates: start: 20050603, end: 20050603

REACTIONS (1)
  - SHOCK [None]
